FAERS Safety Report 18477868 (Version 1)
Quarter: 2020Q4

REPORT INFORMATION
  Report Type: Report from Study
  Country: CN (occurrence: CN)
  Receive Date: 20201108
  Receipt Date: 20201108
  Transmission Date: 20210114
  Serious: Yes (Hospitalization)
  Sender: FDA-Public Use
  Company Number: CN-ASTRAZENECA-2020SF36680

PATIENT
  Age: 72 Year
  Sex: Female

DRUGS (42)
  1. GEMCITABINE. [Suspect]
     Active Substance: GEMCITABINE
     Indication: TRANSITIONAL CELL CARCINOMA
     Route: 042
     Dates: start: 20200924, end: 20200924
  2. COMPOUND SODIUM CHLORIDE [Concomitant]
     Dosage: 500.0ML ONCE/SINGLE ADMINISTRATION
     Route: 042
     Dates: start: 20200710, end: 20200710
  3. COMPOUND SODIUM CHLORIDE [Concomitant]
     Dosage: 500.0ML ONCE/SINGLE ADMINISTRATION
     Route: 042
     Dates: start: 20200724, end: 20200724
  4. SODIUM CHLORIDE INJECTION [Concomitant]
     Active Substance: SODIUM CHLORIDE
     Dosage: 500.0ML ONCE/SINGLE ADMINISTRATION
     Route: 042
     Dates: start: 20200724, end: 20200724
  5. GEMCITABINE. [Suspect]
     Active Substance: GEMCITABINE
     Indication: TRANSITIONAL CELL CARCINOMA
     Route: 042
     Dates: start: 20200731, end: 20200731
  6. GEMCITABINE. [Suspect]
     Active Substance: GEMCITABINE
     Indication: TRANSITIONAL CELL CARCINOMA
     Route: 042
     Dates: start: 20200917, end: 20200917
  7. PANTOPRAZOLE SODIUM. [Concomitant]
     Active Substance: PANTOPRAZOLE SODIUM
     Indication: VOMITING
     Dosage: 40.0MG ONCE/SINGLE ADMINISTRATION
     Route: 042
     Dates: start: 20200724, end: 20200724
  8. DIPHENHYDRAMINE. [Concomitant]
     Active Substance: DIPHENHYDRAMINE
     Indication: VOMITING
     Dosage: 40.0MG ONCE/SINGLE ADMINISTRATION
     Route: 030
     Dates: start: 20200724, end: 20200724
  9. DURVALUMAB. [Suspect]
     Active Substance: DURVALUMAB
     Indication: TRANSITIONAL CELL CARCINOMA
     Route: 042
     Dates: start: 20200703, end: 20200703
  10. DURVALUMAB. [Suspect]
     Active Substance: DURVALUMAB
     Indication: TRANSITIONAL CELL CARCINOMA
     Route: 042
     Dates: start: 20200724, end: 20200724
  11. TREMELIMUMAB. [Suspect]
     Active Substance: TREMELIMUMAB
     Indication: TRANSITIONAL CELL CARCINOMA
     Route: 042
     Dates: start: 20200724, end: 20200724
  12. GEMCITABINE. [Suspect]
     Active Substance: GEMCITABINE
     Indication: TRANSITIONAL CELL CARCINOMA
     Route: 042
     Dates: start: 20200703, end: 20200704
  13. CIMETIDINE [Concomitant]
     Active Substance: CIMETIDINE
     Dosage: 400.0MG ONCE/SINGLE ADMINISTRATION
     Route: 050
     Dates: start: 20200710, end: 20200710
  14. PALONOSETRON. [Concomitant]
     Active Substance: PALONOSETRON HYDROCHLORIDE
     Indication: VOMITING
     Dosage: 0.25MG ONCE/SINGLE ADMINISTRATION
     Route: 042
     Dates: start: 20200703, end: 20200703
  15. DURVALUMAB. [Suspect]
     Active Substance: DURVALUMAB
     Indication: TRANSITIONAL CELL CARCINOMA
     Route: 042
     Dates: start: 20200814, end: 20200814
  16. CISPLATIN. [Suspect]
     Active Substance: CISPLATIN
     Indication: TRANSITIONAL CELL CARCINOMA
     Route: 042
     Dates: start: 20200814, end: 20200814
  17. GEMCITABINE. [Suspect]
     Active Substance: GEMCITABINE
     Indication: TRANSITIONAL CELL CARCINOMA
     Route: 042
     Dates: start: 20200814, end: 20200814
  18. GEMCITABINE. [Suspect]
     Active Substance: GEMCITABINE
     Indication: TRANSITIONAL CELL CARCINOMA
     Route: 042
     Dates: start: 20200821, end: 20200821
  19. TROPISETRON [Concomitant]
     Active Substance: TROPISETRON
     Indication: VOMITING
     Dosage: 5.0MG ONCE/SINGLE ADMINISTRATION
     Route: 042
     Dates: start: 20200710, end: 20200710
  20. TROPISETRON [Concomitant]
     Active Substance: TROPISETRON
     Indication: VOMITING
     Dosage: 5.0MG ONCE/SINGLE ADMINISTRATION
     Route: 042
     Dates: start: 20200724, end: 20200724
  21. CIMETIDINE [Concomitant]
     Active Substance: CIMETIDINE
     Dosage: 400.0MG ONCE/SINGLE ADMINISTRATION
     Route: 050
     Dates: start: 20200703, end: 20200703
  22. DIPHENHYDRAMINE. [Concomitant]
     Active Substance: DIPHENHYDRAMINE
     Indication: VOMITING
     Dosage: 40.0MG ONCE/SINGLE ADMINISTRATION
     Route: 030
     Dates: start: 20200703, end: 20200703
  23. DEXAMETHASONE. [Concomitant]
     Active Substance: DEXAMETHASONE
     Dosage: 5.0MG ONCE/SINGLE ADMINISTRATION
     Route: 050
     Dates: start: 20200724, end: 20200724
  24. DURVALUMAB. [Suspect]
     Active Substance: DURVALUMAB
     Indication: TRANSITIONAL CELL CARCINOMA
     Route: 042
     Dates: start: 20200917, end: 20200917
  25. TREMELIMUMAB. [Suspect]
     Active Substance: TREMELIMUMAB
     Indication: TRANSITIONAL CELL CARCINOMA
     Route: 042
     Dates: start: 20200703, end: 20200703
  26. CISPLATIN. [Suspect]
     Active Substance: CISPLATIN
     Indication: TRANSITIONAL CELL CARCINOMA
     Route: 042
     Dates: start: 20200704, end: 20200704
  27. CISPLATIN. [Suspect]
     Active Substance: CISPLATIN
     Indication: TRANSITIONAL CELL CARCINOMA
     Route: 042
     Dates: start: 20200724, end: 20200724
  28. TREMELIMUMAB. [Suspect]
     Active Substance: TREMELIMUMAB
     Indication: TRANSITIONAL CELL CARCINOMA
     Route: 042
     Dates: start: 20200814, end: 20200814
  29. GEMCITABINE. [Suspect]
     Active Substance: GEMCITABINE
     Indication: TRANSITIONAL CELL CARCINOMA
     Route: 042
     Dates: start: 20200710, end: 20200710
  30. TROPISETRON [Concomitant]
     Active Substance: TROPISETRON
     Indication: VOMITING
     Dosage: 5.0MG ONCE/SINGLE ADMINISTRATION
     Route: 042
     Dates: start: 20200703, end: 20200703
  31. PANTOPRAZOLE SODIUM. [Concomitant]
     Active Substance: PANTOPRAZOLE SODIUM
     Indication: VOMITING
     Dosage: 40.0MG ONCE/SINGLE ADMINISTRATION
     Route: 042
     Dates: start: 20200703, end: 20200703
  32. DIPHENHYDRAMINE. [Concomitant]
     Active Substance: DIPHENHYDRAMINE
     Indication: VOMITING
     Dosage: 40.0MG ONCE/SINGLE ADMINISTRATION
     Route: 030
     Dates: start: 20200710, end: 20200710
  33. DEXAMETHASONE. [Concomitant]
     Active Substance: DEXAMETHASONE
     Dosage: 5.0MG ONCE/SINGLE ADMINISTRATION
     Route: 050
     Dates: start: 20200710, end: 20200710
  34. 5% GLUCOSE INJECTION [Concomitant]
     Active Substance: DEXTROSE
     Dosage: 500.0ML ONCE/SINGLE ADMINISTRATION
     Route: 042
     Dates: start: 20200710, end: 20200710
  35. TREMELIMUMAB. [Suspect]
     Active Substance: TREMELIMUMAB
     Indication: TRANSITIONAL CELL CARCINOMA
     Route: 042
     Dates: start: 20200917, end: 20200917
  36. GEMCITABINE. [Suspect]
     Active Substance: GEMCITABINE
     Indication: TRANSITIONAL CELL CARCINOMA
     Route: 042
     Dates: start: 20200724, end: 20200724
  37. PANTOPRAZOLE SODIUM. [Concomitant]
     Active Substance: PANTOPRAZOLE SODIUM
     Indication: VOMITING
     Dosage: 40.0MG ONCE/SINGLE ADMINISTRATION
     Route: 042
     Dates: start: 20200710, end: 20200710
  38. CIMETIDINE [Concomitant]
     Active Substance: CIMETIDINE
     Dosage: 400.0MG ONCE/SINGLE ADMINISTRATION
     Route: 050
     Dates: start: 20200724, end: 20200724
  39. COMPOUND SODIUM CHLORIDE [Concomitant]
     Dosage: 500.0ML ONCE/SINGLE ADMINISTRATION
     Route: 042
     Dates: start: 20200703, end: 20200703
  40. CISPLATIN. [Suspect]
     Active Substance: CISPLATIN
     Indication: TRANSITIONAL CELL CARCINOMA
     Route: 042
     Dates: start: 20200917, end: 20200917
  41. PALONOSETRON. [Concomitant]
     Active Substance: PALONOSETRON HYDROCHLORIDE
     Indication: VOMITING
     Dosage: 0.25MG ONCE/SINGLE ADMINISTRATION
     Route: 042
     Dates: start: 20200724, end: 20200724
  42. DEXAMETHASONE. [Concomitant]
     Active Substance: DEXAMETHASONE
     Dosage: 5.0MG ONCE/SINGLE ADMINISTRATION
     Route: 050
     Dates: start: 20200703, end: 20200703

REACTIONS (1)
  - Colitis [Recovering/Resolving]

NARRATIVE: CASE EVENT DATE: 20201016
